FAERS Safety Report 14779253 (Version 1)
Quarter: 2018Q2

REPORT INFORMATION
  Report Type: Spontaneous
  Country: FR (occurrence: FR)
  Receive Date: 20180419
  Receipt Date: 20180419
  Transmission Date: 20180711
  Serious: Yes (Congenital Anomaly, Other)
  Sender: FDA-Public Use
  Company Number: FR-ABBVIE-18S-056-2321138-00

PATIENT
  Sex: Male

DRUGS (2)
  1. DEPAKINE [Suspect]
     Active Substance: VALPROATE SODIUM
     Indication: MATERNAL EXPOSURE TIMING UNSPECIFIED
     Route: 064
  2. DEPAKINE [Suspect]
     Active Substance: VALPROATE SODIUM
     Route: 063

REACTIONS (13)
  - Feeding disorder [Unknown]
  - Autism spectrum disorder [Not Recovered/Not Resolved]
  - Dysgraphia [Unknown]
  - Psychomotor skills impaired [Unknown]
  - Congenital musculoskeletal anomaly [Unknown]
  - Exposure via breast milk [Unknown]
  - Dyspraxia [Unknown]
  - Hypotonia [Unknown]
  - Foetal exposure during pregnancy [Unknown]
  - Cryptorchism [Unknown]
  - Frustration tolerance decreased [Unknown]
  - Anger [Unknown]
  - Drug withdrawal syndrome neonatal [Unknown]
